FAERS Safety Report 7343732-8 (Version None)
Quarter: 2011Q1

REPORT INFORMATION
  Report Type: 
  Country: None (occurrence: None)
  Receive Date: 20110310
  Receipt Date: 20101209
  Transmission Date: 20110831
  Serious: No
  Sender: FDA-Public Use
  Company Number: A0898876A

PATIENT
  Age: 61 Year
  Sex: Female

DRUGS (4)
  1. NICODERM CQ [Suspect]
     Indication: PARKINSON'S DISEASE
  2. NICODERM CQ [Suspect]
     Indication: PARKINSON'S DISEASE
  3. NICOTINE POLACRILEX [Suspect]
     Indication: PARKINSON'S DISEASE
  4. MULTIPLE MEDICATIONS [Concomitant]

REACTIONS (3)
  - INTENTIONAL DRUG MISUSE [None]
  - DRUG ADMINISTRATION ERROR [None]
  - APPLICATION SITE RASH [None]
